FAERS Safety Report 19944645 (Version 1)
Quarter: 2021Q4

REPORT INFORMATION
  Report Type: Spontaneous
  Country: US (occurrence: US)
  Receive Date: 20211010
  Receipt Date: 20211010
  Transmission Date: 20220304
  Serious: Yes (Hospitalization)
  Sender: FDA-Public Use
  Company Number: None

PATIENT
  Sex: Female

DRUGS (11)
  1. IBRANCE [Suspect]
     Active Substance: PALBOCICLIB
     Indication: Breast cancer female
     Route: 048
  2. EXEMESTANE [Concomitant]
     Active Substance: EXEMESTANE
  3. HYOSCYAMINE [Concomitant]
     Active Substance: HYOSCYAMINE
  4. IBRANCE [Concomitant]
     Active Substance: PALBOCICLIB
  5. MELATONIN [Concomitant]
     Active Substance: MELATONIN
  6. VITAMINS [Concomitant]
     Active Substance: VITAMINS
  7. SIMVASTATIN [Concomitant]
     Active Substance: SIMVASTATIN
  8. TRIBENZOR [Concomitant]
     Active Substance: AMLODIPINE BESYLATE\HYDROCHLOROTHIAZIDE\OLMESARTAN MEDOXOMIL
  9. VENLAFAXINE [Concomitant]
     Active Substance: VENLAFAXINE HYDROCHLORIDE
  10. VITAMIN D [Concomitant]
     Active Substance: VITAMIN D NOS
  11. ZALEPLON [Concomitant]
     Active Substance: ZALEPLON

REACTIONS (2)
  - Dyspnoea [None]
  - Cough [None]
